FAERS Safety Report 10025235 (Version 1)
Quarter: 2014Q1

REPORT INFORMATION
  Report Type: Spontaneous
  Country: US (occurrence: None)
  Receive Date: 20140319
  Receipt Date: 20140319
  Transmission Date: 20141002
  Serious: Yes (Hospitalization)
  Sender: FDA-Public Use
  Company Number: None

PATIENT
  Age: 62 Year
  Sex: Male
  Weight: 90.63 kg

DRUGS (1)
  1. CISPLATIN [Suspect]

REACTIONS (3)
  - Mucosal inflammation [None]
  - Renal failure acute [None]
  - Aphagia [None]
